FAERS Safety Report 7347352-0 (Version None)
Quarter: 2011Q1

REPORT INFORMATION
  Report Type: 
  Country: None (occurrence: None)
  Receive Date: 20110311
  Receipt Date: 20110104
  Transmission Date: 20110831
  Serious: Yes (Death, Other)
  Sender: FDA-Public Use
  Company Number: US-ROCHE-761311

PATIENT
  Sex: Male

DRUGS (10)
  1. PEGASYS [Suspect]
     Route: 065
     Dates: start: 20031227
  2. BUPROPION [Concomitant]
  3. METHADONE [Concomitant]
  4. REBETRON [Suspect]
     Route: 065
  5. NEUPOGEN [Suspect]
     Route: 065
  6. INTRON A [Suspect]
     Route: 065
  7. GABAPENTIN [Concomitant]
  8. PEGYLATED INTERFERON NOS [Suspect]
     Route: 065
  9. EPOGEN [Suspect]
     Indication: HEPATITIS C
     Route: 065
  10. REBETOL [Suspect]
     Route: 065
     Dates: start: 20031223

REACTIONS (12)
  - SCROTAL OEDEMA [None]
  - SKIN ULCER [None]
  - DIAPHRAGMATIC DISORDER [None]
  - SKIN GRAFT FAILURE [None]
  - PERITONEAL ADHESIONS [None]
  - ABDOMINAL DISTENSION [None]
  - INTESTINAL DILATATION [None]
  - COLLAPSE OF LUNG [None]
  - PAIN [None]
  - PNEUMONIA ASPIRATION [None]
  - LARGE INTESTINE PERFORATION [None]
  - PERITONITIS [None]
